FAERS Safety Report 11066625 (Version 1)
Quarter: 2015Q2

REPORT INFORMATION
  Report Type: Spontaneous
  Country: US (occurrence: None)
  Receive Date: 20150416
  Receipt Date: 20150416
  Transmission Date: 20150821
  Serious: No
  Sender: FDA-Public Use
  Company Number: 2013P1006240

PATIENT
  Age: 81 Year
  Sex: Male

DRUGS (1)
  1. UROXATRAL [Suspect]
     Active Substance: ALFUZOSIN HYDROCHLORIDE

REACTIONS (1)
  - Electrocardiogram QT prolonged [None]
